FAERS Safety Report 9059050 (Version 1)
Quarter: 2013Q1

REPORT INFORMATION
  Report Type: Spontaneous
  Country: US (occurrence: US)
  Receive Date: 20130211
  Receipt Date: 20130211
  Transmission Date: 20140127
  Serious: No
  Sender: FDA-Public Use
  Company Number: US-BRISTOL-MYERS SQUIBB COMPANY-16654881

PATIENT
  Age: 54 Year
  Sex: Female

DRUGS (4)
  1. GLUCOPHAGE [Suspect]
     Route: 065
  2. LANTUS [Suspect]
     Indication: TYPE 2 DIABETES MELLITUS
     Dosage: 1 DF= 90 UNITS?PARENTERAL/INJ,SOLN/100 IU/MILLILITRE
     Route: 058
     Dates: start: 200909
  3. NOVOLOG [Suspect]
     Dates: start: 200909
  4. HUMALOG [Concomitant]
     Dates: start: 200909

REACTIONS (1)
  - Abdominal pain upper [Unknown]
